FAERS Safety Report 4838054-0 (Version None)
Quarter: 2005Q4

REPORT INFORMATION
  Report Type: 
  Country: None (occurrence: None)
  Receive Date: 20051123
  Receipt Date: 20051123
  Transmission Date: 20060501
  Serious: No
  Sender: FDA-Public Use
  Company Number: None

PATIENT
  Age: 45 Year
  Sex: Female

DRUGS (2)
  1. IMIPRAMINE [Suspect]
     Dosage: 25MG - 50 MG
  2. NORETHINDRONE [Concomitant]

REACTIONS (2)
  - LOSS OF CONSCIOUSNESS [None]
  - TORSADE DE POINTES [None]
